FAERS Safety Report 7907359-9 (Version None)
Quarter: 2011Q4

REPORT INFORMATION
  Report Type: 
  Country: None (occurrence: None)
  Receive Date: 20111110
  Receipt Date: 20111108
  Transmission Date: 20120403
  Serious: Yes (Other)
  Sender: FDA-Public Use
  Company Number: DE-GLAXOSMITHKLINE-D0073312A

PATIENT
  Sex: Female

DRUGS (1)
  1. TROBALT [Suspect]
     Dosage: 900MG PER DAY
     Route: 048
     Dates: start: 20110101

REACTIONS (2)
  - APHASIA [None]
  - LOGORRHOEA [None]
